FAERS Safety Report 5582906-3 (Version None)
Quarter: 2008Q1

REPORT INFORMATION
  Report Type: 
  Country: None (occurrence: None)
  Receive Date: 20080107
  Receipt Date: 20071231
  Transmission Date: 20080703
  Serious: Yes (Other)
  Sender: FDA-Public Use
  Company Number: AU-AVENTIS-200810084GDDC

PATIENT
  Age: 83 Year
  Sex: Male

DRUGS (2)
  1. LANTUS [Suspect]
     Route: 058
     Dates: start: 20071015
  2. AUTOPEN INSULIN INJECTION PEN [Suspect]

REACTIONS (3)
  - HYPOGLYCAEMIA [None]
  - MALIGNANT MELANOMA [None]
  - RASH [None]
